FAERS Safety Report 9052422 (Version 1)
Quarter: 2013Q1

REPORT INFORMATION
  Report Type: Spontaneous
  Country: US (occurrence: IN)
  Receive Date: 20130207
  Receipt Date: 20130207
  Transmission Date: 20140127
  Serious: Yes (Other)
  Sender: FDA-Public Use
  Company Number: US-JNJFOC-20130113180

PATIENT
  Sex: 0

DRUGS (2)
  1. DARUNAVIR [Suspect]
     Indication: HIV INFECTION
     Route: 065
  2. ETRAVIRINE [Suspect]
     Indication: HIV INFECTION
     Route: 065

REACTIONS (1)
  - Drug resistance [Unknown]
